FAERS Safety Report 4309741-8 (Version None)
Quarter: 2004Q1

REPORT INFORMATION
  Report Type: 
  Country: None (occurrence: None)
  Receive Date: 20040301
  Receipt Date: 20040218
  Transmission Date: 20041129
  Serious: Yes (Death)
  Sender: FDA-Public Use
  Company Number: USA-2003-0011618

PATIENT
  Age: 42 Year
  Sex: Male
  Weight: 110.2 kg

DRUGS (4)
  1. OXYCODONE HCL [Suspect]
  2. CYCLOBENZAPRINE HCL [Suspect]
  3. ETHANOL (ETHANOL) [Suspect]
  4. NICOTINE [Suspect]

REACTIONS (9)
  - ACCIDENTAL OVERDOSE [None]
  - ATHEROSCLEROSIS [None]
  - CARDIOMEGALY [None]
  - COMA [None]
  - DRUG TOXICITY [None]
  - FALL [None]
  - MULTIPLE DRUG OVERDOSE [None]
  - PULMONARY CONGESTION [None]
  - PULMONARY OEDEMA [None]
